FAERS Safety Report 9912641 (Version 1)
Quarter: 2014Q1

REPORT INFORMATION
  Report Type: Spontaneous
  Country: CH (occurrence: None)
  Receive Date: 20140212
  Receipt Date: 20140212
  Transmission Date: 20141002
  Serious: Yes (Other)
  Sender: FDA-Public Use
  Company Number: US-TORRENT-00000707

PATIENT
  Sex: Male
  Weight: 85.28 kg

DRUGS (5)
  1. ALFUZOSIN HCL [Suspect]
     Indication: PROSTATOMEGALY
     Dates: end: 20130924
  2. ALFUZOSIN HCL [Suspect]
     Indication: PROSTATOMEGALY
     Dates: start: 2009
  3. PREVACID 10 MG (LANSOPRAZOLE) [Concomitant]
  4. ASTEPRO NASAL SPRAY (ASTEPRO NASAL SPRAY) [Concomitant]
  5. NIASPAN ER 1000 MG (NIACIN) [Concomitant]

REACTIONS (3)
  - Micturition urgency [None]
  - Drug effect decreased [None]
  - Product substitution issue [None]
